FAERS Safety Report 5079216-X (Version None)
Quarter: 2006Q3

REPORT INFORMATION
  Report Type: 
  Country: None (occurrence: None)
  Receive Date: 20060808
  Receipt Date: 20060731
  Transmission Date: 20061208
  Serious: Yes (Life-Threatening, Other)
  Sender: FDA-Public Use
  Company Number: 440001E06USA

PATIENT
  Age: 46 Year
  Sex: Male
  Weight: 63.8 kg

DRUGS (2)
  1. SEROSTIM [Suspect]
     Indication: IMMUNE RECONSTITUTION SYNDROME
     Dosage: 3 MG, 1 IN 1 DAYS, SUBCUTANEOUS; 1.5 MG, 1 IN 1 DAYS, SUBCUTANEOUS
     Route: 058
     Dates: start: 20050413, end: 20051017
  2. SEROSTIM [Suspect]
     Indication: IMMUNE RECONSTITUTION SYNDROME
     Dosage: 3 MG, 1 IN 1 DAYS, SUBCUTANEOUS; 1.5 MG, 1 IN 1 DAYS, SUBCUTANEOUS
     Route: 058
     Dates: start: 20051018, end: 20060406

REACTIONS (3)
  - LYMPHOMA [None]
  - NIGHT SWEATS [None]
  - UNEVALUABLE EVENT [None]
